FAERS Safety Report 23326620 (Version 1)
Quarter: 2023Q4

REPORT INFORMATION
  Report Type: Spontaneous
  Country: US (occurrence: None)
  Receive Date: 20231220
  Receipt Date: 20231220
  Transmission Date: 20240110
  Serious: Yes (unspecified)
  Sender: FDA-Public Use
  Company Number: None

PATIENT
  Age: 21 Year
  Sex: Male
  Weight: 64.35 kg

DRUGS (3)
  1. INFLECTRA [Suspect]
     Active Substance: INFLIXIMAB-DYYB
     Indication: Colitis ulcerative
     Dosage: OTHER FREQUENCY : WEEK 0, 2, 6, Q8W;?
     Route: 042
     Dates: start: 20231115, end: 20231115
  2. Sodium Chloride 250 ml [Concomitant]
     Dates: start: 20231115, end: 20231115
  3. Water for Injectable 10 ml [Concomitant]
     Dates: start: 20231115, end: 20231115

REACTIONS (8)
  - Cough [None]
  - Infusion related reaction [None]
  - Erythema [None]
  - Speech disorder [None]
  - Epistaxis [None]
  - Anxiety [None]
  - Blood pressure increased [None]
  - Heart rate increased [None]

NARRATIVE: CASE EVENT DATE: 20231115
